FAERS Safety Report 5170311-3 (Version None)
Quarter: 2006Q4

REPORT INFORMATION
  Report Type: 
  Country: None (occurrence: None)
  Receive Date: 20061204
  Receipt Date: 20061122
  Transmission Date: 20070319
  Serious: Yes (Hospitalization)
  Sender: FDA-Public Use
  Company Number: 2006P1000547

PATIENT
  Age: 34 Year
  Sex: Female

DRUGS (5)
  1. NICARDIPINE HYDROCHLORIDE [Suspect]
     Indication: THREATENED LABOUR
     Dosage: PO, SEE IMAGE
     Route: 048
     Dates: start: 20060904, end: 20060910
  2. NICARDIPINE HYDROCHLORIDE [Suspect]
     Indication: THREATENED LABOUR
     Dosage: PO, SEE IMAGE
     Route: 048
     Dates: start: 20060911, end: 20060912
  3. NICARDIPINE HYDROCHLORIDE [Suspect]
     Indication: THREATENED LABOUR
     Dosage: PO, SEE IMAGE
     Route: 048
     Dates: start: 20060913, end: 20060914
  4. NICARDIPINE HYDROCHLORIDE [Suspect]
     Indication: THREATENED LABOUR
     Dosage: PO, SEE IMAGE
     Route: 048
     Dates: start: 20060914, end: 20060915
  5. CLONIDINE [Concomitant]

REACTIONS (3)
  - DRUG EXPOSURE DURING PREGNANCY [None]
  - LEFT VENTRICULAR FAILURE [None]
  - PULMONARY OEDEMA [None]
